FAERS Safety Report 7798575-8 (Version None)
Quarter: 2011Q4

REPORT INFORMATION
  Report Type: 
  Country: None (occurrence: None)
  Receive Date: 20111005
  Receipt Date: 20110923
  Transmission Date: 20120403
  Serious: Yes (Hospitalization)
  Sender: FDA-Public Use
  Company Number: FR-ROCHE-801317

PATIENT
  Sex: Female

DRUGS (9)
  1. FLUCONAZOLE [Suspect]
     Indication: PRODUCT USED FOR UNKNOWN INDICATION
     Route: 048
     Dates: start: 20110720, end: 20110823
  2. VALGANCICLOVIR [Suspect]
     Indication: PRODUCT USED FOR UNKNOWN INDICATION
     Route: 048
     Dates: start: 20110722, end: 20110724
  3. MYCOPHENOLATE MOFETIL (CELLCEPT) [Suspect]
     Indication: PRODUCT USED FOR UNKNOWN INDICATION
     Route: 048
  4. NEORAL [Suspect]
     Route: 048
     Dates: start: 20110810, end: 20110819
  5. NEORAL [Suspect]
     Dates: start: 20110820, end: 20110820
  6. NEORAL [Suspect]
     Dates: start: 20110821, end: 20110823
  7. VALGANCICLOVIR [Suspect]
  8. TRAMADOL HCL [Suspect]
     Indication: PRODUCT USED FOR UNKNOWN INDICATION
     Dosage: FREQUENCY: DAILY
     Route: 048
     Dates: start: 20110728, end: 20110823
  9. NEORAL [Suspect]
     Indication: PRODUCT USED FOR UNKNOWN INDICATION
     Route: 048
     Dates: start: 20110728, end: 20110803

REACTIONS (2)
  - OPSOCLONUS MYOCLONUS [None]
  - STATUS EPILEPTICUS [None]
